FAERS Safety Report 9518038 (Version 3)
Quarter: 2014Q1

REPORT INFORMATION
  Report Type: Spontaneous
  Country: US (occurrence: US)
  Receive Date: 20130912
  Receipt Date: 20140127
  Transmission Date: 20141002
  Serious: No
  Sender: FDA-Public Use
  Company Number: US-PFIZER INC-2013262650

PATIENT
  Age: 42 Year
  Sex: Female
  Weight: 127 kg

DRUGS (9)
  1. LYRICA [Suspect]
     Indication: FIBROMYALGIA
     Dosage: 100 MG, 2X/DAY
     Dates: start: 201303, end: 20130829
  2. LYRICA [Suspect]
     Dosage: 150 MG, 2X/DAY (150 MG, Q12 HOURS)
     Route: 048
  3. KLONOPIN [Concomitant]
     Indication: ANXIETY
     Dosage: 1 MG, 2X/DAY
  4. KLONOPIN [Concomitant]
     Indication: PANIC ATTACK
  5. LAMICTAL [Concomitant]
     Indication: AFFECTIVE DISORDER
     Dosage: 100 MG, DAILY
  6. LAMICTAL [Concomitant]
     Indication: BIPOLAR DISORDER
  7. ZOLOFT [Concomitant]
     Indication: DEPRESSION
     Dosage: 150 MG, DAILY
  8. TRILEPTAL [Concomitant]
     Indication: BIPOLAR DISORDER
     Dosage: 600 MG AT NIGHT AND 300 MG IN MORNING
  9. BACLOFEN [Concomitant]
     Indication: MUSCLE SPASMS
     Dosage: 20 MG, AS NEEDED

REACTIONS (4)
  - Pain [Recovered/Resolved]
  - Pain in extremity [Recovered/Resolved]
  - Bone pain [Recovered/Resolved]
  - Myalgia [Recovered/Resolved]
